FAERS Safety Report 4781878-9 (Version None)
Quarter: 2005Q3

REPORT INFORMATION
  Report Type: 
  Country: None (occurrence: None)
  Receive Date: 20050927
  Receipt Date: 20050914
  Transmission Date: 20060218
  Serious: Yes (Other)
  Sender: FDA-Public Use
  Company Number: 2005130462

PATIENT
  Age: 53 Year
  Sex: Female
  Weight: 68.9467 kg

DRUGS (2)
  1. NORVASC [Suspect]
     Indication: HYPERTENSION
     Dosage: 5 MG (5 MG, DAILY INTERVAL: EVERY DAY)
     Dates: start: 20030101
  2. NEXIUM [Concomitant]

REACTIONS (12)
  - ARTHROPATHY [None]
  - BACK DISORDER [None]
  - BONE DISORDER [None]
  - DIZZINESS [None]
  - HEADACHE [None]
  - JOINT INJURY [None]
  - LOSS OF CONSCIOUSNESS [None]
  - NECK INJURY [None]
  - PAIN [None]
  - POLYTRAUMATISM [None]
  - ROAD TRAFFIC ACCIDENT [None]
  - SWELLING [None]
